FAERS Safety Report 5323440-5 (Version None)
Quarter: 2007Q2

REPORT INFORMATION
  Report Type: 
  Country: None (occurrence: None)
  Receive Date: 20070514
  Receipt Date: 20070504
  Transmission Date: 20071010
  Serious: Yes (Hospitalization, Other)
  Sender: FDA-Public Use
  Company Number: PHBS2006VE15835

PATIENT
  Age: 52 Week
  Sex: Male
  Weight: 9.3 kg

DRUGS (5)
  1. CATAFLAM [Suspect]
     Indication: ANTIINFLAMMATORY THERAPY
     Dosage: 8 DRP, TID
     Route: 048
     Dates: start: 20060928, end: 20060929
  2. NIPE [Concomitant]
     Indication: TONSILLITIS
     Dosage: 80 MG/KG/DAY
  3. AMOXICILLIN [Concomitant]
     Indication: PYREXIA
     Dosage: 80MK/KG
  4. DEXTROMETHORPHAN [Concomitant]
  5. TYLENOL [Concomitant]

REACTIONS (1)
  - HYPOTHERMIA [None]
